FAERS Safety Report 23059767 (Version 2)
Quarter: 2023Q4

REPORT INFORMATION
  Report Type: Spontaneous
  Country: ZA (occurrence: ZA)
  Receive Date: 20231012
  Receipt Date: 20231027
  Transmission Date: 20240110
  Serious: Yes (Hospitalization)
  Sender: FDA-Public Use
  Company Number: ZA-009507513-2310ZAF001994

PATIENT
  Sex: Female

DRUGS (3)
  1. BRIDION [Suspect]
     Active Substance: SUGAMMADEX
     Dosage: POST-OP
     Dates: start: 202210
  2. KETAMINE [Suspect]
     Active Substance: KETAMINE
     Dosage: INTRA-OP
     Dates: start: 202210
  3. SEVOFLURANE [Suspect]
     Active Substance: SEVOFLURANE
     Dosage: INTRA-OP
     Dates: start: 202210

REACTIONS (3)
  - Aggression [Recovered/Resolved]
  - Agitation [Recovered/Resolved]
  - Eye disorder [Recovered/Resolved]

NARRATIVE: CASE EVENT DATE: 20221001
